FAERS Safety Report 13443059 (Version 3)
Quarter: 2017Q2

REPORT INFORMATION
  Report Type: Spontaneous
  Country: IN (occurrence: IN)
  Receive Date: 20170414
  Receipt Date: 20170510
  Transmission Date: 20170830
  Serious: Yes (Death, Other)
  Sender: FDA-Public Use
  Company Number: IN-ROCHE-1918776

PATIENT
  Sex: Female

DRUGS (1)
  1. AVASTIN [Suspect]
     Active Substance: BEVACIZUMAB
     Indication: DIABETIC RETINOPATHY
     Route: 050

REACTIONS (4)
  - Suspected transmission of an infectious agent via product [Unknown]
  - Vision blurred [Unknown]
  - Cardiac arrest [Fatal]
  - Off label use [Fatal]

NARRATIVE: CASE EVENT DATE: 20170407
